FAERS Safety Report 22590099 (Version 1)
Quarter: 2023Q2

REPORT INFORMATION
  Report Type: Spontaneous
  Country: JO (occurrence: JO)
  Receive Date: 20230612
  Receipt Date: 20230612
  Transmission Date: 20230721
  Serious: Yes (Hospitalization)
  Sender: FDA-Public Use
  Company Number: JO-AMERICAN REGENT INC-2023001407

PATIENT
  Age: 40 Year
  Sex: Female

DRUGS (1)
  1. FERINJECT [Suspect]
     Active Substance: FERRIC CARBOXYMALTOSE
     Indication: Iron deficiency
     Dosage: UNK, RECONSTITUTED IN NORMAL SALINE

REACTIONS (4)
  - Hypoxia [Recovered/Resolved]
  - Hypersensitivity [Recovered/Resolved]
  - Chills [Recovered/Resolved]
  - Suspected product quality issue [Unknown]

NARRATIVE: CASE EVENT DATE: 20230530
